FAERS Safety Report 12051246 (Version 17)
Quarter: 2017Q1

REPORT INFORMATION
  Report Type: Report from Study
  Country: CO (occurrence: CO)
  Receive Date: 20160209
  Receipt Date: 20170305
  Transmission Date: 20170428
  Serious: Yes (Life-Threatening, Hospitalization, Other)
  Sender: FDA-Public Use
  Company Number: PHHY2015CO090040

PATIENT
  Age: 68 Year
  Sex: Female
  Weight: 47 kg

DRUGS (9)
  1. ESOMEPRAZOL//ESOMEPRAZOLE [Concomitant]
     Indication: PRODUCT USED FOR UNKNOWN INDICATION
     Route: 065
  2. AFINITOR [Suspect]
     Active Substance: EVEROLIMUS
     Indication: BREAST CANCER
     Dosage: 10 MG, QD (1 TABLET EVERY 24 HOURS)
     Route: 048
     Dates: start: 20150410, end: 20161227
  3. SPIRONOLACTONE. [Concomitant]
     Active Substance: SPIRONOLACTONE
     Indication: PRODUCT USED FOR UNKNOWN INDICATION
     Dosage: 25 MG, QD
     Route: 048
     Dates: start: 20161212
  4. LOSARTAN. [Concomitant]
     Active Substance: LOSARTAN
     Indication: PRODUCT USED FOR UNKNOWN INDICATION
     Dosage: 50 MG, Q12H
     Route: 065
     Dates: start: 20160714
  5. LOPERAMIDE [Concomitant]
     Active Substance: LOPERAMIDE
     Indication: PRODUCT USED FOR UNKNOWN INDICATION
     Dosage: UNK
     Route: 065
  6. SITAGLIPTIN [Concomitant]
     Active Substance: SITAGLIPTIN
     Indication: BLOOD GLUCOSE ABNORMAL
     Dosage: 100 MG, QD
     Route: 048
     Dates: start: 20161212
  7. TRAMADOL. [Concomitant]
     Active Substance: TRAMADOL
     Indication: PRODUCT USED FOR UNKNOWN INDICATION
     Dosage: UNK OT, TID
     Route: 048
  8. EXEMESTAN [Concomitant]
     Active Substance: EXEMESTANE
     Indication: BREAST CANCER
     Dosage: 25 MG, QD
     Route: 048
     Dates: start: 20150410
  9. ACETAMINOPHEN. [Concomitant]
     Active Substance: ACETAMINOPHEN
     Indication: PAIN
     Dosage: 500 MG, PRN
     Route: 048

REACTIONS (49)
  - Depression [Unknown]
  - Crying [Unknown]
  - Suicidal ideation [Unknown]
  - Diabetes mellitus [Unknown]
  - Mouth injury [Unknown]
  - Stress [Unknown]
  - Spinal pain [Unknown]
  - Onychomadesis [Unknown]
  - Cardiomegaly [Unknown]
  - Asthma [Unknown]
  - Back pain [Unknown]
  - Angina pectoris [Unknown]
  - Dizziness [Recovered/Resolved]
  - Nausea [Recovered/Resolved]
  - Pyrexia [Unknown]
  - Feeding disorder [Unknown]
  - Nervousness [Unknown]
  - Hypertension [Unknown]
  - Mouth ulceration [Not Recovered/Not Resolved]
  - Oral discomfort [Unknown]
  - Discomfort [Unknown]
  - Drug interaction [Unknown]
  - Bone pain [Unknown]
  - Anorectal discomfort [Unknown]
  - Decreased appetite [Unknown]
  - Abdominal discomfort [Not Recovered/Not Resolved]
  - Gastric ulcer [Not Recovered/Not Resolved]
  - Asphyxia [Unknown]
  - Diarrhoea [Recovering/Resolving]
  - Terminal state [Unknown]
  - Dizziness [Unknown]
  - Headache [Unknown]
  - Malaise [Unknown]
  - Abdominal pain upper [Not Recovered/Not Resolved]
  - Vomiting [Recovered/Resolved]
  - Fear of eating [Unknown]
  - Ear pain [Unknown]
  - Renal pain [Unknown]
  - Nausea [Unknown]
  - Therapy non-responder [Unknown]
  - Asocial behaviour [Unknown]
  - Gastritis fungal [Unknown]
  - Eye pain [Unknown]
  - Influenza [Unknown]
  - Pulmonary oedema [Unknown]
  - Skin discolouration [Recovered/Resolved]
  - Stomatitis [Unknown]
  - Oral pain [Unknown]
  - Arthralgia [Not Recovered/Not Resolved]

NARRATIVE: CASE EVENT DATE: 20160425
